FAERS Safety Report 16454437 (Version 1)
Quarter: 2019Q2

REPORT INFORMATION
  Report Type: Spontaneous
  Country: US (occurrence: US)
  Receive Date: 20190619
  Receipt Date: 20190619
  Transmission Date: 20190711
  Serious: No
  Sender: FDA-Public Use
  Company Number: US-ASTRAZENECA-2019SE89129

PATIENT
  Age: 67 Year
  Sex: Female

DRUGS (2)
  1. SUCROSE [Suspect]
     Active Substance: SUCROSE
     Route: 065
  2. PRILOSEC OTC [Suspect]
     Active Substance: OMEPRAZOLE MAGNESIUM
     Dosage: 1.0DF UNKNOWN
     Route: 048
     Dates: start: 20190531

REACTIONS (5)
  - Nausea [Recovering/Resolving]
  - Dysgeusia [Unknown]
  - Allergic reaction to excipient [Recovering/Resolving]
  - Product selection error [Unknown]
  - Documented hypersensitivity to administered product [Unknown]

NARRATIVE: CASE EVENT DATE: 20190531
